FAERS Safety Report 8811314 (Version 1)
Quarter: 2012Q4

REPORT INFORMATION
  Report Type: Spontaneous
  Country: US (occurrence: None)
  Receive Date: 20120924
  Receipt Date: 20120924
  Transmission Date: 20130627
  Serious: Yes (Hospitalization)
  Sender: FDA-Public Use
  Company Number: ACO_20858_2010

PATIENT
  Age: 54 Year
  Sex: Female

DRUGS (2)
  1. AMPYRA [Suspect]
     Indication: GAIT DISTURBANCE
     Route: 048
     Dates: start: 2010
  2. AVONEX (INTERFERON BETA-1A) [Concomitant]

REACTIONS (5)
  - Judgement impaired [None]
  - Urinary tract infection [None]
  - Back pain [None]
  - Feeling abnormal [None]
  - Gait disturbance [None]
